FAERS Safety Report 6218976-9 (Version None)
Quarter: 2009Q2

REPORT INFORMATION
  Report Type: 
  Country: None (occurrence: None)
  Receive Date: 20090608
  Receipt Date: 20090529
  Transmission Date: 20091009
  Serious: Yes (Other)
  Sender: FDA-Public Use
  Company Number: PHEH2009US04316

PATIENT
  Sex: Female
  Weight: 56.689 kg

DRUGS (8)
  1. RECLAST [Suspect]
     Indication: OSTEOPOROSIS
     Dosage: 5 MG
     Route: 042
     Dates: start: 20080701, end: 20080701
  2. RESTASIS [Concomitant]
     Dosage: 2 GTTS, BID
     Route: 047
  3. SIMVASTATIN [Concomitant]
     Indication: BLOOD CHOLESTEROL INCREASED
     Dosage: 40 MG, QD
     Route: 048
  4. PLAVIX [Concomitant]
     Dosage: 75 MG, QD
     Route: 048
  5. HYDROCHLOROTHIAZIDE [Concomitant]
     Indication: HYPERTENSION
     Dosage: 25 MG, QD
     Route: 048
  6. TOPROL-XL [Concomitant]
     Indication: HYPERTENSION
     Dosage: 50 MG, QD
     Route: 048
  7. PROTONIX [Concomitant]
     Dosage: 40 MG, QD
     Route: 048
  8. KLOR-CON [Concomitant]
     Dosage: 25 MBQ, UNK

REACTIONS (3)
  - TEETH BRITTLE [None]
  - TOOTH DISORDER [None]
  - TOOTH EXTRACTION [None]
